FAERS Safety Report 6120026-X (Version None)
Quarter: 2009Q1

REPORT INFORMATION
  Report Type: 
  Country: None (occurrence: None)
  Receive Date: 20090316
  Receipt Date: 20090306
  Transmission Date: 20090719
  Serious: No
  Sender: FDA-Public Use
  Company Number: US-B.I. PHARMACEUTICALS,INC./RIDGEFIELD-2006-BP-04533BP

PATIENT
  Sex: Female

DRUGS (23)
  1. SPIRIVA [Suspect]
     Indication: CHRONIC OBSTRUCTIVE PULMONARY DISEASE
     Dosage: 18MCG
     Route: 055
     Dates: start: 20041122, end: 20041206
  2. TORSEMIDE [Concomitant]
     Dosage: 40MG
     Dates: start: 20010701
  3. ENALAPRIL [Concomitant]
     Dosage: 20MG
     Dates: start: 20030805
  4. DILTIAZEM [Concomitant]
     Dosage: 180MG
     Dates: start: 20030805
  5. SALINE NASAL SPRAY [Concomitant]
     Dates: start: 20041115
  6. ALBUTEROL [Concomitant]
     Dates: start: 20030813
  7. ADVAIR HFA [Concomitant]
     Dates: start: 20031013
  8. SPIRONOLACTONE [Concomitant]
     Dosage: 25MG
     Dates: start: 20040519
  9. CELEBREX [Concomitant]
     Dates: start: 20030101
  10. ASPIRIN [Concomitant]
     Dosage: 650MG
     Dates: start: 19580101
  11. MILK OF MAGNESIA [Concomitant]
     Dates: start: 19580101
  12. ACETAMINOPHEN [Concomitant]
     Dosage: 1000MG
     Dates: start: 19580101
  13. CORICIDIN [Concomitant]
     Dosage: 2MG
     Dates: start: 20040901
  14. MULTI-VITAMIN [Concomitant]
     Dates: start: 19580101
  15. B-50-SUPER B COMPLEX [Concomitant]
     Dosage: 50MG
     Dates: start: 19580101
  16. CALCIUM [Concomitant]
     Dosage: 600MG
     Dates: start: 19580101
  17. ASCORBIC ACID [Concomitant]
     Dosage: 500MG
     Dates: start: 19580101
  18. IRON [Concomitant]
     Dosage: 28MG
     Dates: start: 19580101
  19. NIACINAMIDE [Concomitant]
     Indication: VERTIGO
     Dosage: 500MG
     Dates: start: 19810101
  20. MANGANESE [Concomitant]
     Dosage: 50MG
     Dates: start: 19580101
  21. ZINC [Concomitant]
     Dosage: 50MG
     Dates: start: 19580101
  22. SELENIUM [Concomitant]
     Dosage: 50MG
     Dates: start: 19580101
  23. VITAMIN E [Concomitant]
     Dosage: 400U
     Dates: start: 19580101

REACTIONS (8)
  - ADVERSE DRUG REACTION [None]
  - AGEUSIA [None]
  - COUGH [None]
  - DYSPHONIA [None]
  - DYSPNOEA [None]
  - ELECTRIC SHOCK [None]
  - FEELING COLD [None]
  - RESPIRATORY RATE INCREASED [None]
